FAERS Safety Report 12441591 (Version 2)
Quarter: 2016Q2

REPORT INFORMATION
  Report Type: Report from Study
  Country: MX (occurrence: MX)
  Receive Date: 20160607
  Receipt Date: 20160621
  Transmission Date: 20160815
  Serious: Yes (Other)
  Sender: FDA-Public Use
  Company Number: PHHY2016MX070121

PATIENT
  Age: 78 Year
  Sex: Male

DRUGS (12)
  1. SEEBRI BREEZHALER [Suspect]
     Active Substance: GLYCOPYRROLATE
     Indication: LUNG DISORDER
  2. LANOXIN [Concomitant]
     Active Substance: DIGOXIN
     Indication: PRODUCT USED FOR UNKNOWN INDICATION
     Dosage: 1 DF (0.125/0.25 MG), BEFORE A MEALS (STARTED 7 YEARS AGO)
     Route: 048
  3. ONBREZ BREEZHALER [Suspect]
     Active Substance: INDACATEROL
     Indication: LUNG DISORDER
     Dosage: 1 DF, QD (STARTED 6 MONTHS AGO)
     Route: 065
  4. ELIQUIS [Concomitant]
     Active Substance: APIXABAN
     Indication: PRODUCT USED FOR UNKNOWN INDICATION
     Dosage: 1 DF (5 MG), UNK (AT MIDDAY OR BEFORE THE MEALS) STARTED A MONTH AGO
     Route: 048
  5. ONBREZ BREEZHALER [Suspect]
     Active Substance: INDACATEROL
     Indication: CARDIAC DISORDER
  6. ESPABION [Concomitant]
     Indication: PRODUCT USED FOR UNKNOWN INDICATION
     Route: 065
  7. HYGROTON [Concomitant]
     Active Substance: CHLORTHALIDONE
     Indication: PRODUCT USED FOR UNKNOWN INDICATION
     Dosage: 0.5 DF, QD (IN THE MORNING)
     Route: 065
  8. SEEBRI BREEZHALER [Suspect]
     Active Substance: GLYCOPYRROLATE
     Indication: CARDIAC DISORDER
     Dosage: 1 DF, QD (STARTED 6 MONTHS AGO APPROXIMATELY)
     Route: 065
  9. IGROTON [Concomitant]
     Active Substance: CHLORTHALIDONE
     Indication: PRODUCT USED FOR UNKNOWN INDICATION
     Dosage: 50 MG, UNK
     Route: 065
  10. NICOTINE. [Concomitant]
     Active Substance: NICOTINE
     Indication: SMOKING CESSATION THERAPY
     Dosage: 4 MG, UNK (SOME TIMES DAILY AFTER FOOD). STARTED 2 MONTHS AGO
     Route: 065
  11. DIGOXIN. [Concomitant]
     Active Substance: DIGOXIN
     Indication: CARDIAC DISORDER
     Dosage: 1 DF, QD (STARTED 7 YEARS AGO)
     Route: 048
  12. CLONAZEPAM. [Concomitant]
     Active Substance: CLONAZEPAM
     Indication: PRODUCT USED FOR UNKNOWN INDICATION
     Dosage: 0.25 DF, QHS (STARTED SIX OR SEVEN YEARS AGO)
     Route: 048

REACTIONS (7)
  - Anal haemorrhage [Unknown]
  - Depressed mood [Unknown]
  - Fatigue [Unknown]
  - Cataract [Not Recovered/Not Resolved]
  - Asthenia [Unknown]
  - Dyspnoea [Unknown]
  - Product use issue [Not Recovered/Not Resolved]

NARRATIVE: CASE EVENT DATE: 201601
